FAERS Safety Report 6144265-7 (Version None)
Quarter: 2009Q2

REPORT INFORMATION
  Report Type: 
  Country: None (occurrence: None)
  Receive Date: 20090406
  Receipt Date: 20090305
  Transmission Date: 20091009
  Serious: No
  Sender: FDA-Public Use
  Company Number: US-BAYER-200914874NA

PATIENT
  Age: 18 Year
  Sex: Female
  Weight: 66 kg

DRUGS (4)
  1. YAZ [Suspect]
     Indication: MENORRHAGIA
     Route: 048
     Dates: start: 20081001
  2. FOLIC ACID [Concomitant]
  3. VITAMIN B6 [Concomitant]
  4. VITAMIN B-12 [Concomitant]

REACTIONS (3)
  - ABDOMINAL DISTENSION [None]
  - ADVERSE EVENT [None]
  - MIGRAINE [None]
